FAERS Safety Report 18621397 (Version 2)
Quarter: 2021Q1

REPORT INFORMATION
  Report Type: Spontaneous
  Country: US (occurrence: US)
  Receive Date: 20201216
  Receipt Date: 20210104
  Transmission Date: 20210419
  Serious: No
  Sender: FDA-Public Use
  Company Number: US-APOTEX-2020AP022797

PATIENT
  Sex: Male

DRUGS (2)
  1. AZELASTINE HCL NASAL SPRAY [Suspect]
     Active Substance: AZELASTINE HYDROCHLORIDE
     Indication: PRODUCT USED FOR UNKNOWN INDICATION
     Dosage: TWO SPRAYS IN EACH NOSTRIL TWICE A DAY
     Route: 045
  2. AZELASTINE HCL NASAL SPRAY [Suspect]
     Active Substance: AZELASTINE HYDROCHLORIDE
     Dosage: ONE SPRAY IN EACH NOSTRIL ONCE A DAY
     Route: 065

REACTIONS (2)
  - Inappropriate schedule of product administration [Unknown]
  - Product delivery mechanism issue [Unknown]
